FAERS Safety Report 5012827-6 (Version None)
Quarter: 2006Q2

REPORT INFORMATION
  Report Type: 
  Country: None (occurrence: None)
  Receive Date: 20060530
  Receipt Date: 20060406
  Transmission Date: 20061013
  Serious: No
  Sender: FDA-Public Use
  Company Number: US-BRISTOL-MYERS SQUIBB COMPANY-13338827

PATIENT
  Age: 59 Year
  Sex: Male
  Weight: 99 kg

DRUGS (9)
  1. ERBITUX [Suspect]
     Route: 042
     Dates: start: 20060331, end: 20060331
  2. CAMPTOSAR [Concomitant]
     Dates: start: 20060324, end: 20060324
  3. GEMZAR [Concomitant]
     Dates: start: 20060324, end: 20060324
  4. CORTISONE ACETATE TAB [Concomitant]
     Indication: PREMEDICATION
     Dates: start: 20060331, end: 20060331
  5. BENADRYL [Concomitant]
     Indication: PREMEDICATION
     Dates: start: 20060331, end: 20060331
  6. KYTRIL [Concomitant]
     Indication: PREMEDICATION
     Dates: start: 20060331, end: 20060331
  7. LISINOPRIL [Concomitant]
  8. NORVASC [Concomitant]
  9. ATENOLOL [Concomitant]

REACTIONS (1)
  - RASH [None]
